FAERS Safety Report 4709648-8 (Version None)
Quarter: 2005Q3

REPORT INFORMATION
  Report Type: 
  Country: None (occurrence: None)
  Receive Date: 20050705
  Receipt Date: 20050627
  Transmission Date: 20060218
  Serious: Yes (Death)
  Sender: FDA-Public Use
  Company Number: WAES 0506DEU00207

PATIENT
  Age: 47 Year
  Sex: Male

DRUGS (5)
  1. COZAAR [Suspect]
     Indication: ESSENTIAL HYPERTENSION
     Dosage: 100 MG/DAILY  PO
     Route: 048
     Dates: start: 20040408, end: 20041107
  2. [THERAPY UNSPECIFIED] [Concomitant]
  3. ASPIRIN [Concomitant]
  4. DIURETIC [Concomitant]
  5. STATIN [Concomitant]

REACTIONS (1)
  - SUDDEN CARDIAC DEATH [None]
